FAERS Safety Report 13048476 (Version 2)
Quarter: 2016Q4

REPORT INFORMATION
  Report Type: Spontaneous
  Country: IT (occurrence: IT)
  Receive Date: 20161221
  Receipt Date: 20161226
  Transmission Date: 20170207
  Serious: Yes (Other)
  Sender: FDA-Public Use
  Company Number: PHHY2016IT174113

PATIENT
  Age: 73 Year
  Sex: Female

DRUGS (2)
  1. CICLOSPORIN [Suspect]
     Active Substance: CYCLOSPORINE
     Indication: ANAEMIA
     Dosage: 2 MG/KG, QD
     Route: 048
     Dates: start: 201209
  2. PREDNISONE. [Suspect]
     Active Substance: PREDNISONE
     Indication: ANAEMIA
     Dosage: UNK
     Route: 065
     Dates: start: 201209

REACTIONS (4)
  - Treatment failure [Unknown]
  - Concomitant disease aggravated [Unknown]
  - Cytopenia [Unknown]
  - Product use issue [Unknown]

NARRATIVE: CASE EVENT DATE: 201209
